FAERS Safety Report 23118898 (Version 1)
Quarter: 2023Q4

REPORT INFORMATION
  Report Type: Report from Study
  Country: US (occurrence: US)
  Receive Date: 20231028
  Receipt Date: 20231028
  Transmission Date: 20240110
  Serious: Yes (Other)
  Sender: FDA-Public Use
  Company Number: US-TAKEDA-2023TUS080593

PATIENT
  Age: 50 Year
  Sex: Male

DRUGS (1)
  1. MARIBAVIR [Suspect]
     Active Substance: MARIBAVIR
     Indication: Cytomegalovirus infection
     Dosage: 4 DOSAGE FORM, BID
     Route: 048
     Dates: start: 20230725

REACTIONS (2)
  - Lung transplant [Unknown]
  - Product use issue [Unknown]

NARRATIVE: CASE EVENT DATE: 20230813
